FAERS Safety Report 5551230-7 (Version None)
Quarter: 2007Q4

REPORT INFORMATION
  Report Type: 
  Country: None (occurrence: None)
  Receive Date: 20071128
  Receipt Date: 20070221
  Transmission Date: 20080405
  Serious: Yes (Hospitalization, Other)
  Sender: FDA-Public Use
  Company Number: FRVA20070004

PATIENT
  Age: 57 Year
  Sex: Female
  Weight: 68.0396 kg

DRUGS (3)
  1. FROVA [Suspect]
     Indication: MIGRAINE
     Dosage: 2.5 MG, ONCE, PER ORAL
     Route: 048
     Dates: start: 20051003, end: 20051003
  2. LOPRESSOR [Concomitant]
  3. AMITRIPTYLINE HCL [Concomitant]

REACTIONS (1)
  - CEREBROVASCULAR ACCIDENT [None]
